FAERS Safety Report 4463258-9 (Version None)
Quarter: 2004Q3

REPORT INFORMATION
  Report Type: 
  Country: None (occurrence: None)
  Receive Date: 20040930
  Receipt Date: 20040917
  Transmission Date: 20050211
  Serious: Yes (Other)
  Sender: FDA-Public Use
  Company Number: IE-GLAXOSMITHKLINE-B0345998A

PATIENT
  Age: 47 Year
  Sex: Male

DRUGS (4)
  1. REQUIP [Suspect]
     Indication: PARKINSON'S DISEASE
     Dosage: 9MG PER DAY
     Route: 048
  2. PROTIUM [Concomitant]
  3. CO-AMOXICLAV [Concomitant]
  4. AMANTADINE HCL [Concomitant]
     Route: 048

REACTIONS (1)
  - JAUNDICE [None]
